FAERS Safety Report 6615997-9 (Version None)
Quarter: 2010Q1

REPORT INFORMATION
  Report Type: 
  Country: None (occurrence: None)
  Receive Date: 20100305
  Receipt Date: 20100301
  Transmission Date: 20100710
  Serious: Yes (Other)
  Sender: FDA-Public Use
  Company Number: A0848411A

PATIENT
  Age: 87 Year
  Sex: Female

DRUGS (3)
  1. SEREVENT [Suspect]
     Indication: CHRONIC OBSTRUCTIVE PULMONARY DISEASE
     Route: 055
     Dates: start: 20070101
  2. SPIRIVA [Suspect]
     Indication: CHRONIC OBSTRUCTIVE PULMONARY DISEASE
     Dosage: 18MCG PER DAY
     Route: 065
     Dates: start: 20070101
  3. CELEBREX [Concomitant]
     Indication: ARTHRITIS

REACTIONS (3)
  - CONSTIPATION [None]
  - ILEUS PARALYTIC [None]
  - MELANOCYTIC NAEVUS [None]
